FAERS Safety Report 13586049 (Version 4)
Quarter: 2020Q1

REPORT INFORMATION
  Report Type: Spontaneous
  Country: US (occurrence: US)
  Receive Date: 20170526
  Receipt Date: 20200121
  Transmission Date: 20200409
  Serious: Yes (Disabling, Other)
  Sender: FDA-Public Use
  Company Number: US-SAOL THERAPEUTICS-2016SAO00453

PATIENT
  Age: 55 Year
  Sex: Female

DRUGS (2)
  1. LIORESAL [Suspect]
     Active Substance: BACLOFEN
     Dosage: 50 ?G, \DAY
     Route: 037
  2. LIORESAL [Suspect]
     Active Substance: BACLOFEN
     Indication: MUSCLE SPASTICITY
     Dosage: 143 UNK, UNK
     Route: 037

REACTIONS (16)
  - Loss of personal independence in daily activities [Recovered/Resolved]
  - Overdose [Recovered/Resolved]
  - Fall [Unknown]
  - Muscle spasticity [Unknown]
  - Nausea [Unknown]
  - Dizziness [Unknown]
  - Unevaluable event [Unknown]
  - Cognitive disorder [Unknown]
  - Gait inability [Recovered/Resolved]
  - Therapeutic response decreased [Unknown]
  - Pain [Unknown]
  - Joint injury [Unknown]
  - Muscular weakness [Recovering/Resolving]
  - Muscle tightness [Not Recovered/Not Resolved]
  - Malaise [Unknown]
  - Agitation [Unknown]

NARRATIVE: CASE EVENT DATE: 20160129
